FAERS Safety Report 10185723 (Version 1)
Quarter: 2014Q2

REPORT INFORMATION
  Report Type: Spontaneous
  Country: BR (occurrence: BR)
  Receive Date: 20140521
  Receipt Date: 20140521
  Transmission Date: 20141212
  Serious: Yes (Death, Hospitalization, Other)
  Sender: FDA-Public Use
  Company Number: BR-ABBVIE-14P-020-1238486-00

PATIENT
  Age: 82 Year
  Sex: Female

DRUGS (4)
  1. HUMIRA [Suspect]
     Indication: RHEUMATOID ARTHRITIS
  2. ETANERCEPT [Suspect]
     Indication: PRODUCT USED FOR UNKNOWN INDICATION
  3. RITUXIMAB [Suspect]
     Indication: PRODUCT USED FOR UNKNOWN INDICATION
     Dates: start: 201310, end: 201310
  4. METHOTREXATE [Suspect]
     Indication: PRODUCT USED FOR UNKNOWN INDICATION

REACTIONS (6)
  - Multi-organ failure [Fatal]
  - Diarrhoea [Unknown]
  - Mucosal inflammation [Unknown]
  - Toxicity to various agents [Unknown]
  - Myelodysplastic syndrome [Unknown]
  - Drug ineffective [Unknown]
